FAERS Safety Report 10527210 (Version 1)
Quarter: 2014Q4

REPORT INFORMATION
  Report Type: Spontaneous
  Country: US (occurrence: None)
  Receive Date: 20141016
  Receipt Date: 20141016
  Transmission Date: 20150528
  Serious: Yes (Other)
  Sender: FDA-Public Use
  Company Number: None

PATIENT
  Age: 41 Year
  Sex: Female
  Weight: 61.24 kg

DRUGS (2)
  1. DULOXETINE DELAYED-RELEASE 60 MG CAPSULES USP [Suspect]
     Active Substance: DULOXETINE
     Indication: ANXIETY
     Dosage: 30 PILLS
     Route: 048
     Dates: start: 20140926, end: 20141010
  2. DULOXETINE DELAYED-RELEASE 60 MG CAPSULES USP [Suspect]
     Active Substance: DULOXETINE
     Indication: OSTEOARTHRITIS
     Dosage: 30 PILLS
     Route: 048
     Dates: start: 20140926, end: 20141010

REACTIONS (2)
  - Vertigo [None]
  - Product substitution issue [None]

NARRATIVE: CASE EVENT DATE: 20140926
